FAERS Safety Report 6718557-4 (Version None)
Quarter: 2010Q2

REPORT INFORMATION
  Report Type: 
  Country: None (occurrence: None)
  Receive Date: 20100503
  Receipt Date: 20100420
  Transmission Date: 20101027
  Serious: Yes (Hospitalization, Other)
  Sender: FDA-Public Use
  Company Number: 1-22321146

PATIENT
  Age: 6 Year
  Sex: Male
  Weight: 17.5088 kg

DRUGS (7)
  1. BACTRIM [Suspect]
     Dosage: ORAL
     Route: 048
  2. STUDY DRUG, UNK STRENGTH, PFIZER [Suspect]
     Dosage: 70MG, TWICE DAILY, ORAL
     Route: 048
     Dates: start: 20100113, end: 20100310
  3. CYCLOPHOSPHAMIDE, UNK STRENGTH [Suspect]
     Indication: CHEMOTHERAPY
     Dates: start: 20100318
  4. CYCLOPHOSPHAMIDE, UNK STRENGTH [Suspect]
     Indication: PALLIATIVE CARE
     Dates: start: 20100318
  5. MORPHINE [Suspect]
     Dosage: ORAL
     Route: 048
  6. TOPOTECAN [Suspect]
     Indication: CHEMOTHERAPY
     Dates: start: 20100318
  7. TOPOTECAN [Suspect]
     Indication: PALLIATIVE CARE
     Dates: start: 20100318

REACTIONS (9)
  - FEBRILE NEUTROPENIA [None]
  - LYMPHOPENIA [None]
  - MALIGNANT NEOPLASM PROGRESSION [None]
  - NEUROBLASTOMA [None]
  - NEUROBLASTOMA RECURRENT [None]
  - NEUTROPENIA [None]
  - PAIN IN EXTREMITY [None]
  - THROMBOCYTOPENIA [None]
  - VIRAL INFECTION [None]
